FAERS Safety Report 17315710 (Version 1)
Quarter: 2020Q1

REPORT INFORMATION
  Report Type: Spontaneous
  Country: ES (occurrence: ES)
  Receive Date: 20200124
  Receipt Date: 20200124
  Transmission Date: 20200409
  Serious: Yes (Hospitalization)
  Sender: FDA-Public Use
  Company Number: ES-PFIZER INC-2020029672

PATIENT
  Age: 19 Year
  Sex: Male
  Weight: 55 kg

DRUGS (4)
  1. TIGECYCLINE. [Suspect]
     Active Substance: TIGECYCLINE
     Indication: PROPHYLAXIS
     Dosage: 100 MG, 2X/DAY (EVERY 12 HOURS)
     Route: 042
     Dates: start: 20191112
  2. COLISTIMETHATE SODIUM. [Concomitant]
     Active Substance: COLISTIMETHATE SODIUM
     Dosage: 2 MILLION IU, 3X/DAY (EVERY 8 HOURS)
     Route: 042
     Dates: start: 20191108, end: 20191115
  3. SYMKEVI [Concomitant]
     Active Substance: IVACAFTOR\TEZACAFTOR
     Dosage: 1 DF, 2X/DAY (EVERY 12 HOURS)
     Route: 048
     Dates: start: 20190621
  4. CLOXACILINA [CLOXACILLIN] [Concomitant]
     Active Substance: CLOXACILLIN
     Dosage: 2 G, 4X/DAY (EVERY 6 HOURS)
     Route: 042
     Dates: start: 20191108, end: 20191112

REACTIONS (4)
  - Product use in unapproved indication [Unknown]
  - Product use issue [Unknown]
  - Hypoalbuminaemia [Recovered/Resolved]
  - Off label use [Unknown]

NARRATIVE: CASE EVENT DATE: 20191112
